FAERS Safety Report 5259307-0 (Version None)
Quarter: 2007Q1

REPORT INFORMATION
  Report Type: 
  Country: None (occurrence: None)
  Receive Date: 20070308
  Receipt Date: 20070226
  Transmission Date: 20070707
  Serious: Yes (Other)
  Sender: FDA-Public Use
  Company Number: JP-MERCK-0611USA03538

PATIENT
  Age: 73 Year
  Sex: Female
  Weight: 50 kg

DRUGS (28)
  1. FOSAMAX [Suspect]
     Indication: OSTEOPOROSIS
     Route: 048
     Dates: start: 20040823, end: 20050616
  2. TAXOTERE [Concomitant]
     Route: 042
  3. CARBOPLATIN [Concomitant]
     Route: 042
  4. IRINOTECAN HYDROCHLORIDE [Concomitant]
     Route: 042
  5. RIVOTRIL [Concomitant]
     Route: 065
  6. LASIX [Concomitant]
     Route: 048
  7. PAXIL [Concomitant]
     Route: 048
  8. FORSENID [Concomitant]
     Route: 048
  9. GOSHA-JINKI-GAN [Concomitant]
     Route: 048
  10. LAXOBERON [Concomitant]
     Route: 048
  11. VOLTAREN [Concomitant]
     Route: 054
  12. POLARAMINE [Concomitant]
     Route: 048
  13. MARZULENE-S [Concomitant]
     Route: 048
  14. NASEA [Concomitant]
     Route: 048
  15. DECADRON FOSFATO [Concomitant]
     Route: 042
  16. SAXIZON [Concomitant]
     Route: 042
  17. GASTER [Concomitant]
     Route: 042
  18. KYTRIL [Concomitant]
     Route: 065
  19. LEVOFLOXACIN [Concomitant]
     Route: 065
  20. SOLANTAL [Concomitant]
     Route: 048
  21. FLAVERIC [Concomitant]
     Route: 048
  22. MUCOSOLVAN [Concomitant]
     Route: 048
  23. COUGH, COLD, AND FLU THERAPIES (UNSPECIFIED) [Concomitant]
     Route: 048
  24. ROCEPHIN [Concomitant]
     Route: 041
  25. FLUMARIN [Concomitant]
     Route: 041
  26. ISODINE [Concomitant]
     Route: 048
  27. SELTOUCH [Concomitant]
     Route: 061
  28. [THERAPY UNSPECIFIED] [Concomitant]
     Route: 048

REACTIONS (3)
  - DEEP VEIN THROMBOSIS [None]
  - ERUCTATION [None]
  - GASTROOESOPHAGEAL REFLUX DISEASE [None]
